FAERS Safety Report 25030317 (Version 1)
Quarter: 2025Q1

REPORT INFORMATION
  Report Type: Spontaneous
  Country: CA (occurrence: CA)
  Receive Date: 20250303
  Receipt Date: 20250303
  Transmission Date: 20250409
  Serious: Yes (Death, Other)
  Sender: MICRO LABS
  Company Number: CA-862174955-ML2025-01021

PATIENT
  Age: 91 Year

DRUGS (1)
  1. RANOLAZINE [Suspect]
     Active Substance: RANOLAZINE
     Indication: Angina pectoris
     Dosage: DOSAGE: MAINTENANCE - 500 MG - PO (BY MOUTH/ORAL) TWICE A DAY
     Route: 048
     Dates: start: 20240401

REACTIONS (1)
  - Death [Fatal]

NARRATIVE: CASE EVENT DATE: 20250201
